FAERS Safety Report 7163063-9 (Version None)
Quarter: 2010Q4

REPORT INFORMATION
  Report Type: 
  Country: None (occurrence: None)
  Receive Date: 20101210
  Receipt Date: 20101210
  Transmission Date: 20110411
  Serious: Yes (Disabling)
  Sender: FDA-Public Use
  Company Number: None

PATIENT

DRUGS (1)
  1. ATROPINE SULFATE [Suspect]
     Indication: ENDOSCOPY
     Dosage: 1MG ON TIME USE IV
     Route: 042
     Dates: start: 20101208, end: 20101208

REACTIONS (1)
  - DEVICE BREAKAGE [None]
